FAERS Safety Report 12143987 (Version 1)
Quarter: 2016Q1

REPORT INFORMATION
  Report Type: Spontaneous
  Country: ES (occurrence: ES)
  Receive Date: 20160304
  Receipt Date: 20160304
  Transmission Date: 20160526
  Serious: Yes (Hospitalization)
  Sender: FDA-Public Use
  Company Number: ES-ROCHE-1720806

PATIENT
  Age: 78 Year
  Sex: Male

DRUGS (3)
  1. DICLOFENACO [Suspect]
     Active Substance: DICLOFENAC
     Indication: HERPES ZOSTER
     Route: 030
     Dates: start: 20160213, end: 20160213
  2. VALIUM [Suspect]
     Active Substance: DIAZEPAM
     Indication: HERPES ZOSTER
     Route: 030
     Dates: start: 20160213, end: 20160213
  3. DICLOFENACO [Suspect]
     Active Substance: DICLOFENAC
     Indication: HERPES ZOSTER
     Route: 048
     Dates: start: 20160213, end: 20160214

REACTIONS (1)
  - Acute myocardial infarction [Recovering/Resolving]

NARRATIVE: CASE EVENT DATE: 20160214
